FAERS Safety Report 4719170-0 (Version None)
Quarter: 2005Q3

REPORT INFORMATION
  Report Type: 
  Country: None (occurrence: None)
  Receive Date: 20050719
  Receipt Date: 20050708
  Transmission Date: 20060218
  Serious: Yes (Other)
  Sender: FDA-Public Use
  Company Number: 2005-05-0988

PATIENT
  Age: 72 Year
  Sex: Female
  Weight: 59 kg

DRUGS (10)
  1. PEG-INTRON [Suspect]
     Indication: HEPATITIS C
     Dosage: 80MCG QW-UNK SUBCUTANEOUS
     Route: 058
     Dates: start: 20050303, end: 20050101
  2. PEG-INTRON [Suspect]
     Indication: HEPATITIS C
     Dosage: 80MCG QW-UNK SUBCUTANEOUS
     Route: 058
     Dates: start: 20050101
  3. PEG-INTRON [Suspect]
     Indication: HEPATITIS C
     Dosage: 80MCG QW-UNK SUBCUTANEOUS
     Route: 058
     Dates: start: 20050303
  4. REBETOL [Suspect]
     Indication: HEPATITIS C
     Dosage: 600 MG-UNK ORAL
     Route: 048
     Dates: start: 20050303, end: 20050101
  5. REBETOL [Suspect]
     Indication: HEPATITIS C
     Dosage: 600 MG-UNK ORAL
     Route: 048
     Dates: start: 20050101
  6. REBETOL [Suspect]
     Indication: HEPATITIS C
     Dosage: 600 MG-UNK ORAL
     Route: 048
     Dates: start: 20050303
  7. PEGSYS (PEGYLATED INTERFERON ALFA-2A) [Suspect]
     Dates: end: 20050303
  8. AMLODIPINE BESILATE TABLETS [Concomitant]
  9. ACARBOSE TABLETS [Concomitant]
  10. STRONGER NEO MINOPHAGEN C [Concomitant]

REACTIONS (8)
  - ANAEMIA [None]
  - DRUG INEFFECTIVE [None]
  - INJECTION SITE ERYTHEMA [None]
  - INJECTION SITE PUSTULE [None]
  - INJECTION SITE REACTION [None]
  - INJECTION SITE ULCER [None]
  - PAIN IN EXTREMITY [None]
  - SKIN DISORDER [None]
